FAERS Safety Report 8261151-7 (Version None)
Quarter: 2012Q2

REPORT INFORMATION
  Report Type: 
  Country: None (occurrence: None)
  Receive Date: 20120405
  Receipt Date: 20120403
  Transmission Date: 20120825
  Serious: Yes (Other)
  Sender: FDA-Public Use
  Company Number: PHHY2011NL85447

PATIENT
  Sex: Male

DRUGS (7)
  1. ZOMETA [Suspect]
     Dosage: 4 MG/5 ML 1X PER 21 DAYS IV AT 320 ML/H
     Dates: start: 20111017
  2. ZOMETA [Suspect]
     Dosage: 4 MG/100 ML IV 320 ML/H.
     Dates: start: 20120313
  3. ZOMETA [Suspect]
     Indication: PROSTATE CANCER METASTATIC
     Dosage: 4 MG/5 ML 1X PER 21 DAYS IV AT 320 ML/H
     Dates: start: 20090917
  4. ZOMETA [Suspect]
     Dosage: 4 MG/5 ML 1X PER 21 DAYS IV AT 320 ML/H
     Dates: start: 20110926
  5. ZOMETA [Suspect]
     Dosage: 4 MG/5 ML 1X PER 21 DAYS IV AT 320 ML/H
     Dates: start: 20110905
  6. ZOMETA [Suspect]
     Dosage: 4 MG/100 ML IV 320 ML/H.
     Dates: start: 20120403
  7. CALCIUM CARBONATE [Concomitant]
     Dosage: UNK UKN, UNK

REACTIONS (4)
  - NAUSEA [None]
  - ASTHENIA [None]
  - GENERAL PHYSICAL HEALTH DETERIORATION [None]
  - DECREASED APPETITE [None]
